FAERS Safety Report 9701285 (Version 1)
Quarter: 2013Q4

REPORT INFORMATION
  Report Type: Spontaneous
  Country: US (occurrence: US)
  Receive Date: 20131121
  Receipt Date: 20131121
  Transmission Date: 20140711
  Serious: No
  Sender: FDA-Public Use
  Company Number: US-GILEAD-2008-0016262

PATIENT
  Sex: Female
  Weight: 126.1 kg

DRUGS (16)
  1. LETAIRIS [Suspect]
     Indication: PULMONARY ARTERIAL HYPERTENSION
     Route: 048
     Dates: start: 20080327
  2. LASIX [Concomitant]
     Route: 048
  3. AMLODIPINE [Concomitant]
     Route: 048
  4. SYNTHROID [Concomitant]
     Route: 048
  5. LANTUS [Concomitant]
     Route: 048
  6. CARBAMAZEPINE [Concomitant]
     Route: 048
  7. IBUPROFEN [Concomitant]
     Route: 048
  8. VITAMIN B12 [Concomitant]
     Route: 048
  9. CRESTOR [Concomitant]
     Route: 048
  10. FISH OIL [Concomitant]
     Route: 048
  11. ASPIRIN [Concomitant]
     Route: 048
  12. CALCIUM [Concomitant]
     Route: 048
  13. ALEVE [Concomitant]
     Route: 048
  14. ACTOS [Concomitant]
     Route: 048
  15. ZETIA [Concomitant]
     Route: 048
  16. SPIRONOLACTONE [Concomitant]
     Route: 048

REACTIONS (3)
  - Insomnia [Unknown]
  - Cough [Unknown]
  - Nasal congestion [Unknown]
